FAERS Safety Report 17225862 (Version 1)
Quarter: 2020Q1

REPORT INFORMATION
  Report Type: Spontaneous
  Country: SE (occurrence: SE)
  Receive Date: 20200102
  Receipt Date: 20200102
  Transmission Date: 20200409
  Serious: Yes (Hospitalization)
  Sender: FDA-Public Use
  Company Number: SE-MYLANLABS-2019M1131668

PATIENT
  Age: 26 Year
  Sex: Female

DRUGS (2)
  1. ZOLPIDEM [Concomitant]
     Active Substance: ZOLPIDEM TARTRATE
     Dosage: UNK
     Dates: start: 20181217, end: 20181217
  2. LERGIGAN (PROMETHAZINE) [Suspect]
     Active Substance: PROMETHAZINE HYDROCHLORIDE
     Indication: PRODUCT USED FOR UNKNOWN INDICATION
     Dosage: ^100 MG 1 TOM BURK^
     Route: 048
     Dates: start: 20181217, end: 20181217

REACTIONS (11)
  - Anxiety [Unknown]
  - Suicide attempt [Unknown]
  - Hallucination [Unknown]
  - Blood pressure increased [Unknown]
  - Vomiting [Unknown]
  - Depressed level of consciousness [Unknown]
  - Restlessness [Unknown]
  - Tachycardia [Unknown]
  - Mydriasis [Unknown]
  - Somnolence [Unknown]
  - Intentional overdose [Unknown]

NARRATIVE: CASE EVENT DATE: 20181217
